FAERS Safety Report 24448837 (Version 3)
Quarter: 2024Q4

REPORT INFORMATION
  Report Type: Report from Study
  Country: US (occurrence: US)
  Receive Date: 20241017
  Receipt Date: 20241127
  Transmission Date: 20250115
  Serious: Yes (Other)
  Sender: UCB
  Company Number: US-UCBSA-2024052133

PATIENT
  Sex: Male

DRUGS (1)
  1. BIMEKIZUMAB [Suspect]
     Active Substance: BIMEKIZUMAB
     Indication: Psoriasis
     Dosage: 320 MILLIGRAM, EV 4 WEEKS
     Route: 058
     Dates: start: 20240821, end: 20241018

REACTIONS (6)
  - Anaphylactic reaction [Not Recovered/Not Resolved]
  - Bedridden [Not Recovered/Not Resolved]
  - Streptococcal infection [Recovered/Resolved]
  - Urticaria [Recovered/Resolved]
  - Illness [Recovered/Resolved]
  - Pain [Recovered/Resolved]

NARRATIVE: CASE EVENT DATE: 20240101
